FAERS Safety Report 7477111-X (Version None)
Quarter: 2011Q2

REPORT INFORMATION
  Report Type: 
  Country: None (occurrence: None)
  Receive Date: 20110512
  Receipt Date: 20110119
  Transmission Date: 20111010
  Serious: No
  Sender: FDA-Public Use
  Company Number: US-NOVEN-11US001497

PATIENT
  Sex: Female
  Weight: 24.49 kg

DRUGS (2)
  1. DAYTRANA [Suspect]
     Indication: ATTENTION DEFICIT/HYPERACTIVITY DISORDER
     Dosage: 30 MG, 1X/DAY:QD
     Route: 062
     Dates: start: 20050101, end: 20110102
  2. AMOXICILLIN [Concomitant]
     Indication: PHARYNGITIS STREPTOCOCCAL
     Dosage: UNK
     Route: 048
     Dates: start: 20101201, end: 20101201

REACTIONS (5)
  - ABDOMINAL DISCOMFORT [None]
  - INCREASED APPETITE [None]
  - PRODUCT QUALITY ISSUE [None]
  - DECREASED APPETITE [None]
  - MYALGIA [None]
